FAERS Safety Report 8487509-9 (Version None)
Quarter: 2012Q3

REPORT INFORMATION
  Report Type: 
  Country: None (occurrence: None)
  Receive Date: 20120705
  Receipt Date: 20120615
  Transmission Date: 20120928
  Serious: Yes (Hospitalization)
  Sender: FDA-Public Use
  Company Number: US-BAYER-2012-060591

PATIENT
  Age: 50 Year
  Sex: Female
  Weight: 74.83 kg

DRUGS (14)
  1. ONDANSETRON [Concomitant]
     Dosage: 8 MG, UNK
  2. DROSPIRENONE AND ETHINYL ESTRADIOL [Suspect]
  3. OMEPRAZOLE [Concomitant]
     Dosage: 20 MG, UNK
  4. DYAZIDE [Concomitant]
     Indication: POLYCYSTIC OVARIES
     Dosage: 37.5/25 MG
  5. YASMIN [Suspect]
  6. ROBAXIN [Concomitant]
     Dosage: 750 MG, UNK
  7. VICODIN [Concomitant]
     Indication: MUSCLE SPASMS
     Dosage: 40 DISPENSED FOR 5 DAYS' USE
  8. VALIUM [Concomitant]
     Indication: MUSCLE SPASMS
     Dosage: 5 MG Q 8 HOURS PRN
  9. DROSPIRENONE AND ETHINYL ESTRADIOL [Suspect]
  10. AMOXICILLIN AND CLAVULANATE POTASSIUM [Concomitant]
     Dosage: 20 DISPENSED FOR 10 DAYS' USE
  11. LORTAB [Concomitant]
  12. YAZ [Suspect]
  13. KETOROLAC TROMETHAMINE [Concomitant]
  14. MORPHINE [Concomitant]

REACTIONS (3)
  - PULMONARY INFARCTION [None]
  - PULMONARY EMBOLISM [None]
  - DEEP VEIN THROMBOSIS [None]
